FAERS Safety Report 15343465 (Version 1)
Quarter: 2018Q3

REPORT INFORMATION
  Report Type: Spontaneous
  Country: US (occurrence: US)
  Receive Date: 20180903
  Receipt Date: 20180903
  Transmission Date: 20181010
  Serious: No
  Sender: FDA-Public Use
  Company Number: US-PFIZER INC-2018351261

PATIENT
  Age: 62 Year
  Sex: Female

DRUGS (3)
  1. VERAPAMIL HCL [Suspect]
     Active Substance: VERAPAMIL HYDROCHLORIDE
  2. PROCARDIA [Suspect]
     Active Substance: NIFEDIPINE
  3. NIFEDIPINE. [Suspect]
     Active Substance: NIFEDIPINE

REACTIONS (1)
  - Drug hypersensitivity [Unknown]
